FAERS Safety Report 11855366 (Version 1)
Quarter: 2015Q4

REPORT INFORMATION
  Report Type: Spontaneous
  Country: AU (occurrence: AU)
  Receive Date: 20151221
  Receipt Date: 20151221
  Transmission Date: 20160305
  Serious: Yes (Other)
  Sender: FDA-Public Use
  Company Number: AU-MYLANLABS-2015M1045505

PATIENT

DRUGS (4)
  1. QUETIAPINE [Concomitant]
     Active Substance: QUETIAPINE
     Indication: MENTAL DISORDER
     Dosage: 150 MG AT NIGHT
     Route: 065
  2. ATORVASTATIN [Suspect]
     Active Substance: ATORVASTATIN
     Indication: METABOLIC SYNDROME
     Dosage: 10 MG DAILY
     Route: 065
  3. METFORMIN [Suspect]
     Active Substance: METFORMIN HYDROCHLORIDE
     Indication: METABOLIC SYNDROME
     Dosage: INCREASED 1 G TWICE DAILY OVER 4 WEEKS
     Route: 065
  4. FLUOXETINE [Suspect]
     Active Substance: FLUOXETINE HYDROCHLORIDE
     Indication: MENTAL DISORDER
     Dosage: 20 MG IN MORNING
     Route: 065

REACTIONS (3)
  - Product use issue [Unknown]
  - Immune-mediated necrotising myopathy [Recovering/Resolving]
  - Myopathy [Recovering/Resolving]
